FAERS Safety Report 7971261-7 (Version None)
Quarter: 2011Q4

REPORT INFORMATION
  Report Type: 
  Country: None (occurrence: None)
  Receive Date: 20111212
  Receipt Date: 20101119
  Transmission Date: 20120403
  Serious: No
  Sender: FDA-Public Use
  Company Number: US-BRISTOL-MYERS SQUIBB COMPANY-15397227

PATIENT
  Age: 61 Year
  Sex: Female

DRUGS (1)
  1. IXEMPRA KIT [Suspect]
     Route: 042
     Dates: start: 20100101

REACTIONS (1)
  - ARTHRALGIA [None]
